FAERS Safety Report 18446167 (Version 2)
Quarter: 2020Q4

REPORT INFORMATION
  Report Type: Report from Study
  Country: CA (occurrence: CA)
  Receive Date: 20201030
  Receipt Date: 20201203
  Transmission Date: 20210114
  Serious: Yes (Other)
  Sender: FDA-Public Use
  Company Number: PHHY2018CA118828

PATIENT
  Age: 54 Year
  Sex: Female

DRUGS (2)
  1. GILENYA [Suspect]
     Active Substance: FINGOLIMOD HYDROCHLORIDE
     Indication: RELAPSING-REMITTING MULTIPLE SCLEROSIS
     Dosage: UNK
     Route: 048
     Dates: start: 20180913
  2. GILENYA [Suspect]
     Active Substance: FINGOLIMOD HYDROCHLORIDE
     Dosage: UNK
     Route: 065
     Dates: start: 20201013

REACTIONS (16)
  - Eye pain [Unknown]
  - Paraesthesia [Unknown]
  - Central nervous system lesion [Unknown]
  - Pain in extremity [Unknown]
  - Headache [Unknown]
  - Product dose omission issue [Unknown]
  - Vertigo [Unknown]
  - Feeling cold [Unknown]
  - Anxiety [Unknown]
  - Fatigue [Unknown]
  - Visual impairment [Unknown]
  - Arthralgia [Unknown]
  - Neck pain [Unknown]
  - Emotional disorder [Unknown]
  - Asthenia [Unknown]
  - Dizziness [Unknown]

NARRATIVE: CASE EVENT DATE: 20201015
